FAERS Safety Report 23564374 (Version 1)
Quarter: 2024Q1

REPORT INFORMATION
  Report Type: Spontaneous
  Country: US (occurrence: US)
  Receive Date: 20240226
  Receipt Date: 20240226
  Transmission Date: 20240410
  Serious: Yes (Other)
  Sender: FDA-Public Use
  Company Number: US-STRIDES ARCOLAB LIMITED-2024SP002234

PATIENT
  Sex: Female

DRUGS (1)
  1. MYCOPHENOLATE MOFETIL [Suspect]
     Active Substance: MYCOPHENOLATE MOFETIL
     Indication: Dermatomyositis
     Dosage: UNK  (TABLETS) (STARTED 2 WEEKS AGO)
     Route: 048

REACTIONS (5)
  - Choking [Unknown]
  - Dysphagia [Unknown]
  - Muscular weakness [Unknown]
  - Aphonia [Unknown]
  - Off label use [Unknown]
